FAERS Safety Report 5032017-0 (Version None)
Quarter: 2006Q2

REPORT INFORMATION
  Report Type: 
  Country: None (occurrence: None)
  Receive Date: 20060608
  Receipt Date: 20060510
  Transmission Date: 20061013
  Serious: Yes (Hospitalization)
  Sender: FDA-Public Use
  Company Number: 602482

PATIENT
  Age: 62 Year
  Sex: Male
  Weight: 76 kg

DRUGS (4)
  1. BUMINATE 25% [Suspect]
     Indication: HYPOALBUMINAEMIA
     Dosage: 100 ML; EVERY DAY; IV
     Route: 042
     Dates: start: 20050319, end: 20050321
  2. BUMINATE 25% [Suspect]
     Indication: NEPHROTIC SYNDROME
     Dosage: 100 ML; EVERY DAY; IV
     Route: 042
     Dates: start: 20050319, end: 20050321
  3. BUMINATE 25% [Suspect]
     Indication: OEDEMA
     Dosage: 100 ML; EVERY DAY; IV
     Route: 042
     Dates: start: 20050319, end: 20050321
  4. FUROSEMIDE [Concomitant]

REACTIONS (2)
  - SEPSIS [None]
  - WHITE BLOOD CELL COUNT DECREASED [None]
